FAERS Safety Report 9036633 (Version 1)
Quarter: 2013Q1

REPORT INFORMATION
  Report Type: Spontaneous
  Country: US (occurrence: None)
  Receive Date: 20130114
  Receipt Date: 20130114
  Transmission Date: 20140127
  Serious: No
  Sender: FDA-Public Use
  Company Number: 2013-00009

PATIENT
  Age: 75 Year
  Sex: Male
  Weight: 81.65 kg

DRUGS (1)
  1. ZICAM COLD RAPIDMELTS [Suspect]
     Indication: NASOPHARYNGITIS
     Dosage: 1-2 RAPIDMELTS EVERY 3-4 HOURS
     Dates: start: 20121214, end: 20121221

REACTIONS (1)
  - Anosmia [None]
